FAERS Safety Report 5860386-8 (Version None)
Quarter: 2008Q3

REPORT INFORMATION
  Report Type: 
  Country: None (occurrence: None)
  Receive Date: 20080827
  Receipt Date: 20080820
  Transmission Date: 20090109
  Serious: Yes (Other)
  Sender: FDA-Public Use
  Company Number: US-JNJCH-2008021633

PATIENT
  Age: 5 Year

DRUGS (1)
  1. FRESH CITRUS LISTERINE POCKETPAKS [Suspect]
     Indication: DRUG USE FOR UNKNOWN INDICATION
     Dosage: TEXT:1 STRIP ONE TIME
     Route: 048
     Dates: start: 20080720, end: 20080720

REACTIONS (2)
  - THROAT TIGHTNESS [None]
  - URTICARIA [None]
